FAERS Safety Report 5950880-3 (Version None)
Quarter: 2008Q4

REPORT INFORMATION
  Report Type: 
  Country: None (occurrence: None)
  Receive Date: 20081112
  Receipt Date: 20081103
  Transmission Date: 20090506
  Serious: Yes (Hospitalization, Other)
  Sender: FDA-Public Use
  Company Number: US-MERCK-0607USA00822

PATIENT
  Age: 68 Year
  Sex: Male
  Weight: 81 kg

DRUGS (12)
  1. FOSAMAX [Suspect]
     Indication: OSTEOPOROSIS
     Route: 048
     Dates: start: 19960101, end: 20060401
  2. FOSAMAX [Suspect]
     Route: 048
     Dates: start: 20000712, end: 20011001
  3. FOSAMAX [Suspect]
     Route: 048
     Dates: start: 20020114, end: 20050610
  4. FOSAMAX [Suspect]
     Route: 048
  5. FOSAMAX [Suspect]
     Route: 048
  6. FOSAMAX [Suspect]
     Route: 048
  7. FOSAMAX [Suspect]
     Route: 048
  8. FOSAMAX [Suspect]
     Route: 048
  9. PROSCAR [Concomitant]
     Indication: BENIGN PROSTATIC HYPERPLASIA
     Route: 048
  10. HYTRIN [Concomitant]
     Indication: BENIGN PROSTATIC HYPERPLASIA
     Route: 065
  11. COZAAR [Concomitant]
     Route: 048
  12. CARDURA [Suspect]
     Route: 065

REACTIONS (40)
  - BLOOD PARATHYROID HORMONE INCREASED [None]
  - CHOLELITHIASIS [None]
  - CLOSTRIDIUM DIFFICILE COLITIS [None]
  - COLONIC POLYP [None]
  - CONTUSION [None]
  - DECREASED APPETITE [None]
  - DEHYDRATION [None]
  - DEPRESSION [None]
  - DIARRHOEA [None]
  - DIZZINESS [None]
  - EAR PRURITUS [None]
  - EMPHYSEMA [None]
  - FALL [None]
  - FEMUR FRACTURE [None]
  - GASTRITIS [None]
  - GINGIVAL BLEEDING [None]
  - HELICOBACTER GASTRITIS [None]
  - HYPERPLASIA [None]
  - HYPOAESTHESIA [None]
  - INCISIONAL HERNIA [None]
  - INFLAMMATION [None]
  - INGUINAL HERNIA, OBSTRUCTIVE [None]
  - IRRITABLE BOWEL SYNDROME [None]
  - MOUTH ULCERATION [None]
  - MYOCARDIAL INFARCTION [None]
  - NAUSEA [None]
  - NEOPLASM PROSTATE [None]
  - NEUROPATHY PERIPHERAL [None]
  - NOCTURIA [None]
  - ORAL DISORDER [None]
  - OSTEOMYELITIS [None]
  - OSTEONECROSIS [None]
  - PANCREATITIS ACUTE [None]
  - PARAESTHESIA [None]
  - PARANASAL SINUS HYPERSECRETION [None]
  - SINUSITIS [None]
  - SPINAL COMPRESSION FRACTURE [None]
  - TENDON RUPTURE [None]
  - WEIGHT DECREASED [None]
  - WRIST FRACTURE [None]
